FAERS Safety Report 13611014 (Version 2)
Quarter: 2018Q1

REPORT INFORMATION
  Report Type: Spontaneous
  Country: US (occurrence: US)
  Receive Date: 20170605
  Receipt Date: 20180219
  Transmission Date: 20180508
  Serious: Yes (Death, Hospitalization)
  Sender: FDA-Public Use
  Company Number: US-B.I. PHARMACEUTICALS,INC./RIDGEFIELD-2017-BI-031188

PATIENT
  Age: 55 Year
  Sex: Male

DRUGS (1)
  1. PRADAXA [Suspect]
     Active Substance: DABIGATRAN ETEXILATE MESYLATE
     Indication: ATRIAL FIBRILLATION
     Route: 048
     Dates: start: 201306

REACTIONS (8)
  - Intestinal perforation [Fatal]
  - Gastrointestinal haemorrhage [Fatal]
  - Skin haemorrhage [Unknown]
  - Shock haemorrhagic [Fatal]
  - End stage renal disease [Fatal]
  - Haemorrhagic anaemia [Unknown]
  - Metabolic acidosis [Fatal]
  - Chronic hepatic failure [Fatal]

NARRATIVE: CASE EVENT DATE: 20130614
